FAERS Safety Report 4815562-X (Version None)
Quarter: 2005Q4

REPORT INFORMATION
  Report Type: 
  Country: None (occurrence: None)
  Receive Date: 20051027
  Receipt Date: 20051014
  Transmission Date: 20060501
  Serious: Yes (Life-Threatening)
  Sender: FDA-Public Use
  Company Number: HQWYE042814OCT05

PATIENT
  Age: 72 Year
  Sex: Female

DRUGS (16)
  1. CORDARONE [Suspect]
     Dosage: 150 MG WITH DEXTROSE 100 ML INTRAVENOUS
     Route: 042
     Dates: start: 20050930, end: 20050930
  2. MANNITOL [Concomitant]
  3. CITICOLINE (CITICOLINE) [Concomitant]
  4. GLIATILIN (CHOLINE ALFOSCERATE) [Concomitant]
  5. DICLOFENAC (DICLOFENAC) [Concomitant]
  6. BROMHEXINE (BROMHEXINE) [Concomitant]
  7. DOPAMINE HCL [Concomitant]
  8. AMIKACIN [Concomitant]
  9. AZACTAM [Concomitant]
  10. GLYCERYL TRINITRATE (GLYCERYL TRINITRATE) [Concomitant]
  11. ASTRIX (ACETYLSALICYLIC ACID) [Concomitant]
  12. PONSTEL [Concomitant]
  13. DISGREN (TRIFLUSAL) [Concomitant]
  14. GINKGO BILOBA (GINKGO BILOBA) [Concomitant]
  15. REBAMIPIDE (REBAMIPIDE) [Concomitant]
  16. ADENOCOR (ADENOSINE) [Concomitant]

REACTIONS (3)
  - BLISTER [None]
  - INJECTION SITE ERYTHEMA [None]
  - SKIN EXFOLIATION [None]
